FAERS Safety Report 10412508 (Version 1)
Quarter: 2014Q2

REPORT INFORMATION
  Report Type: Spontaneous
  Country: US (occurrence: None)
  Receive Date: 20140604
  Receipt Date: 20140604
  Transmission Date: 20141212
  Serious: Yes (Hospitalization, Other)
  Sender: FDA-Public Use
  Company Number: 163-POMAL-14032957

PATIENT
  Age: 54 Year
  Sex: Female

DRUGS (31)
  1. POMALYST (POMALIDOMIDE) (4 MILLIGRAM, CAPSULES) [Suspect]
     Indication: PLASMA CELL MYELOMA
     Dosage: 4 MG, 21 IN 21 D
     Route: 048
     Dates: start: 201310
  2. NEUPOGEN (FILGRASTIM) [Concomitant]
  3. BACTRIM [Concomitant]
  4. PENTAMIDINE [Concomitant]
  5. DEPOCYTE (CYTARABINE) LIPOSOME INJECTABLE SUSPENSION, MG [Concomitant]
  6. PAMIDRONATE (PAMIDRONATE SODIUM) [Concomitant]
  7. LORTAB (VICODIN) [Concomitant]
  8. OXYCONTIN (OXYCODONE HYDROCHLORIDE) [Concomitant]
  9. ZOMETA (ZOLEDRONIC ACID) [Concomitant]
  10. OXYCODONE/APAP [Concomitant]
  11. ROBAXIN (METHOCARBAMOL) [Concomitant]
  12. NEXIUM (ESOMEPRAZOLE) [Concomitant]
  13. POTASSIUM CHLORIDE [Concomitant]
  14. ALPRAZOLAM [Concomitant]
  15. ACYCLOVIR (ACICLOVIR) (ACICLOVIR) [Concomitant]
  16. ZOLPIDEM [Concomitant]
  17. ONDANSETRON [Concomitant]
  18. DULOXETINE [Concomitant]
  19. METHOCARBAMOL [Concomitant]
  20. RISPERIDONE [Concomitant]
  21. ZONISAMIDE [Concomitant]
  22. ALBUTEROL (SALBUTAMOL) [Concomitant]
  23. QUETIAPINE [Concomitant]
  24. LORAZEPAM [Concomitant]
  25. DEXAMETHASONE [Concomitant]
  26. LOVENOX (HEPARIN-FRACTION, SODIUM SALT) [Concomitant]
  27. IMODIUM (LOPERAMIDE HYDROCHLORIDE) (LOPERAMIDE) [Concomitant]
  28. LOMOTIL [Concomitant]
  29. CARBAMAZEPINE [Concomitant]
  30. CARAFATE (SUCRALFATE) TABLET, 1G [Concomitant]
  31. PEPCID (FAMOTIDINE) [Concomitant]

REACTIONS (1)
  - Plasma cell leukaemia [None]
